FAERS Safety Report 10014484 (Version 1)
Quarter: 2014Q1

REPORT INFORMATION
  Report Type: Report from Study
  Country: CA (occurrence: CA)
  Receive Date: 20140317
  Receipt Date: 20140317
  Transmission Date: 20141002
  Serious: Yes (Other)
  Sender: FDA-Public Use
  Company Number: CA-ABBVIE-14P-028-1210658-00

PATIENT
  Sex: Male
  Weight: 81.72 kg

DRUGS (2)
  1. HUMIRA [Suspect]
     Indication: CROHN^S DISEASE
     Route: 058
     Dates: start: 20110413
  2. VITAMIN B 12 [Concomitant]
     Indication: VITAMIN SUPPLEMENTATION

REACTIONS (2)
  - Gastrointestinal inflammation [Unknown]
  - Malaise [Unknown]
